FAERS Safety Report 16852056 (Version 1)
Quarter: 2019Q3

REPORT INFORMATION
  Report Type: Spontaneous
  Country: CA (occurrence: CA)
  Receive Date: 20190925
  Receipt Date: 20190925
  Transmission Date: 20191005
  Serious: Yes (Other)
  Sender: FDA-Public Use
  Company Number: CA-CELGENEUS-CAN-20190906387

PATIENT
  Sex: Female

DRUGS (4)
  1. NAPROXEN. [Concomitant]
     Active Substance: NAPROXEN
     Indication: PRODUCT USED FOR UNKNOWN INDICATION
     Dosage: 500 MILLIGRAM
     Route: 065
  2. OTEZLA [Suspect]
     Active Substance: APREMILAST
     Indication: PSORIATIC ARTHROPATHY
     Dosage: 60 MILLIGRAM
     Route: 065
     Dates: start: 20160505, end: 20170119
  3. OTEZLA [Suspect]
     Active Substance: APREMILAST
     Route: 065
     Dates: start: 201909
  4. OTEZLA [Suspect]
     Active Substance: APREMILAST
     Route: 065
     Dates: start: 20170908

REACTIONS (1)
  - Pyelonephritis [Unknown]
